FAERS Safety Report 10557798 (Version 1)
Quarter: 2014Q4

REPORT INFORMATION
  Report Type: Spontaneous
  Country: HU (occurrence: HU)
  Receive Date: 20141031
  Receipt Date: 20141031
  Transmission Date: 20150529
  Serious: Yes (Other)
  Sender: FDA-Public Use
  Company Number: HU-PFIZER INC-2014298814

PATIENT
  Age: 69 Year
  Sex: Male

DRUGS (1)
  1. CARDURA XL [Suspect]
     Active Substance: DOXAZOSIN MESYLATE
     Dosage: UNK

REACTIONS (5)
  - Pulmonary oedema [Unknown]
  - Oedema peripheral [Unknown]
  - Rheumatoid factor increased [Unknown]
  - Heart rate increased [Unknown]
  - Multi-organ disorder [Unknown]
